FAERS Safety Report 8799714 (Version 2)
Quarter: 2013Q4

REPORT INFORMATION
  Report Type: Spontaneous
  Country: NL (occurrence: NL)
  Receive Date: 20120919
  Receipt Date: 20131106
  Transmission Date: 20140711
  Serious: Yes (Other)
  Sender: FDA-Public Use
  Company Number: NL-MERCK-1209NLD004624

PATIENT
  Sex: Male
  Weight: 80 kg

DRUGS (1)
  1. STROMECTOL [Suspect]
     Indication: ACARODERMATITIS
     Dosage: 18 MG, ONCE
     Route: 048
     Dates: start: 200607

REACTIONS (9)
  - Aphasia [Unknown]
  - Insomnia [Recovered/Resolved]
  - Ataxia [Unknown]
  - Cluster headache [Recovered/Resolved]
  - Learning disability [Unknown]
  - Mental impairment [Unknown]
  - Amnesia [Unknown]
  - Bradyphrenia [Unknown]
  - Logorrhoea [Unknown]
